FAERS Safety Report 5723081-1 (Version None)
Quarter: 2008Q2

REPORT INFORMATION
  Report Type: 
  Country: None (occurrence: None)
  Receive Date: 20080430
  Receipt Date: 20080423
  Transmission Date: 20081010
  Serious: Yes (Hospitalization, Other)
  Sender: FDA-Public Use
  Company Number: DE-JNJFOC-20080305730

PATIENT
  Sex: Female

DRUGS (1)
  1. GALANTAMINE HYDROBROMIDE [Suspect]
     Indication: DRUG USE FOR UNKNOWN INDICATION
     Route: 048

REACTIONS (6)
  - ATRIOVENTRICULAR BLOCK COMPLETE [None]
  - BURNS THIRD DEGREE [None]
  - FALL [None]
  - HYPERTENSION [None]
  - SYNCOPE [None]
  - TACHYARRHYTHMIA [None]
